FAERS Safety Report 23259129 (Version 1)
Quarter: 2023Q4

REPORT INFORMATION
  Report Type: Report from Study
  Country: FR (occurrence: FR)
  Receive Date: 20231204
  Receipt Date: 20231204
  Transmission Date: 20240110
  Serious: Yes (Other)
  Sender: FDA-Public Use
  Company Number: FR-GILEAD-2022-0585626

PATIENT
  Sex: Female
  Weight: 60 kg

DRUGS (6)
  1. SACITUZUMAB GOVITECAN-HZIY [Suspect]
     Active Substance: SACITUZUMAB GOVITECAN-HZIY
     Indication: Triple negative breast cancer
     Dosage: 10 MG/KG C1D1 AND C1D8
     Route: 042
     Dates: start: 20220516, end: 20220523
  2. SACITUZUMAB GOVITECAN-HZIY [Suspect]
     Active Substance: SACITUZUMAB GOVITECAN-HZIY
     Dosage: 10 MG/KG C1D1 AND C1D8
     Route: 042
     Dates: start: 20220607, end: 20220614
  3. SACITUZUMAB GOVITECAN-HZIY [Suspect]
     Active Substance: SACITUZUMAB GOVITECAN-HZIY
     Dosage: UNK
     Route: 042
     Dates: start: 20220628
  4. SACITUZUMAB GOVITECAN-HZIY [Suspect]
     Active Substance: SACITUZUMAB GOVITECAN-HZIY
     Dosage: C4D1 10 MG/KG
     Route: 042
     Dates: start: 20220718
  5. SACITUZUMAB GOVITECAN-HZIY [Suspect]
     Active Substance: SACITUZUMAB GOVITECAN-HZIY
     Dosage: C5 D1/D8 (OFF LABEL USE BECAUSE C5D8 WAS NOT DONE AT D8 WHICH IS NOT RECOMMENDED IN THE EU-SMPC
     Route: 042
     Dates: start: 20220921, end: 20220927
  6. SACITUZUMAB GOVITECAN-HZIY [Suspect]
     Active Substance: SACITUZUMAB GOVITECAN-HZIY
     Dosage: 10 MG/KG (OFF LABEL USE BECAUSE LESS THAN 21 DAYS BETWEEN C5 AND C6 WHICH IS NOT RECOMMENDED
     Route: 042
     Dates: start: 20221010

REACTIONS (6)
  - Disease progression [Unknown]
  - Asthenia [Recovered/Resolved with Sequelae]
  - Nausea [Recovered/Resolved]
  - Inappropriate schedule of product administration [Unknown]
  - Therapy interrupted [Unknown]
  - Inappropriate schedule of product administration [Unknown]

NARRATIVE: CASE EVENT DATE: 20220101
